FAERS Safety Report 7734549 (Version 3)
Quarter: 2014Q1

REPORT INFORMATION
  Report Type: Spontaneous
  Country: US (occurrence: US)
  Receive Date: 20101223
  Receipt Date: 20140206
  Transmission Date: 20141002
  Serious: Yes (Hospitalization, Other)
  Sender: FDA-Public Use
  Company Number: US-BAYER-2010-002702

PATIENT
  Age: 20 Year
  Sex: Female
  Weight: 95.24 kg

DRUGS (4)
  1. YASMIN [Suspect]
     Indication: CONTRACEPTION
     Dosage: UNK
     Dates: start: 200508, end: 2008
  2. YAZ [Suspect]
     Dosage: UNK
  3. EXCEDRIN MIGRAINE [Concomitant]
     Indication: HEADACHE
     Dosage: 500 ML, UNK
     Dates: start: 2000
  4. TYLENOL [PARACETAMOL] [Concomitant]
     Indication: ABDOMINAL PAIN UPPER
     Dosage: 500 ML, UNK

REACTIONS (3)
  - Cholelithiasis [None]
  - Gallbladder injury [None]
  - Cholecystitis chronic [None]
